FAERS Safety Report 6771883-5 (Version None)
Quarter: 2010Q2

REPORT INFORMATION
  Report Type: 
  Country: None (occurrence: None)
  Receive Date: 20100616
  Receipt Date: 20091123
  Transmission Date: 20101027
  Serious: No
  Sender: FDA-Public Use
  Company Number: US-ASTRAZENECA-2009SE28064

PATIENT
  Age: 56 Year
  Sex: Male

DRUGS (1)
  1. ENTOCORT EC [Suspect]
     Route: 048

REACTIONS (2)
  - CONTUSION [None]
  - INJECTION SITE HAEMATOMA [None]
